FAERS Safety Report 4612938-0 (Version None)
Quarter: 2005Q1

REPORT INFORMATION
  Report Type: 
  Country: None (occurrence: None)
  Receive Date: 20050318
  Receipt Date: 20050307
  Transmission Date: 20050727
  Serious: Yes (Hospitalization)
  Sender: FDA-Public Use
  Company Number: US-ROCHE-397826

PATIENT
  Sex: Male

DRUGS (1)
  1. KLONOPIN [Suspect]
     Indication: ANXIETY
     Dosage: TAKEN FOR MANY YEARS.
     Route: 048

REACTIONS (11)
  - BALANCE DISORDER [None]
  - CLAVICLE FRACTURE [None]
  - DRUG WITHDRAWAL SYNDROME [None]
  - DYSPHAGIA [None]
  - FACIAL BONES FRACTURE [None]
  - FALL [None]
  - FRACTURE [None]
  - MUSCLE TWITCHING [None]
  - MYOCARDIAL INFARCTION [None]
  - RIB FRACTURE [None]
  - TARDIVE DYSKINESIA [None]
